FAERS Safety Report 8453823-6 (Version None)
Quarter: 2012Q2

REPORT INFORMATION
  Report Type: 
  Country: None (occurrence: None)
  Receive Date: 20120323
  Receipt Date: 20111115
  Transmission Date: 20120825
  Serious: Yes (Other)
  Sender: FDA-Public Use
  Company Number: 163-21880-11110436

PATIENT
  Age: 80 Year
  Sex: Female
  Weight: 52.1637 kg

DRUGS (15)
  1. ACTONEL [Concomitant]
  2. ASPIRIN [Concomitant]
  3. ADVAIR (SERETRIDE MITE) [Concomitant]
  4. PREDNISONE TAB [Concomitant]
  5. PROCRIT [Concomitant]
  6. FLUCONAZOLE [Concomitant]
  7. SPIRIVA [Concomitant]
  8. REVLIMID [Suspect]
     Indication: MYELODYSPLASTIC SYNDROME
     Dosage: 10 MG, DAILY X 21 DAYS, PO
     Route: 048
     Dates: start: 20100819
  9. IRON (IRON) [Concomitant]
  10. TRAZODONE HCL [Concomitant]
  11. CALCIUM CARBONATE [Concomitant]
  12. LISINOPRIL [Concomitant]
  13. PRILOSEC [Concomitant]
  14. VITAMIN B (VITAMIN B) [Concomitant]
  15. VITAMIN C (ASCORBIC AID) [Concomitant]

REACTIONS (3)
  - PLATELET COUNT DECREASED [None]
  - HAEMATOCRIT DECREASED [None]
  - HAEMOGLOBIN DECREASED [None]
